FAERS Safety Report 21949158 (Version 1)
Quarter: 2023Q1

REPORT INFORMATION
  Report Type: Spontaneous
  Country: IL (occurrence: IL)
  Receive Date: 20230203
  Receipt Date: 20230203
  Transmission Date: 20230417
  Serious: Yes (Hospitalization, Other)
  Sender: FDA-Public Use
  Company Number: IL-SA-SAC20230202001298

PATIENT
  Age: 51 Year
  Sex: Male

DRUGS (2)
  1. DUPIXENT [Suspect]
     Active Substance: DUPILUMAB
     Dosage: UNK
     Route: 065
  2. NUCALA [Concomitant]
     Active Substance: MEPOLIZUMAB

REACTIONS (7)
  - Deafness [Unknown]
  - Eosinophilic granulomatosis with polyangiitis [Unknown]
  - Pyrexia [Unknown]
  - Dyspnoea [Unknown]
  - Nasal congestion [Unknown]
  - Sinusitis [Unknown]
  - Eosinophil count increased [Unknown]
